FAERS Safety Report 8544683-3 (Version None)
Quarter: 2012Q3

REPORT INFORMATION
  Report Type: 
  Country: None (occurrence: None)
  Receive Date: 20120727
  Receipt Date: 20120719
  Transmission Date: 20120928
  Serious: Yes (Other)
  Sender: FDA-Public Use
  Company Number: FR-UCBSA-062298

PATIENT
  Age: 50 Year
  Sex: Male

DRUGS (5)
  1. PREDNISOLONE [Concomitant]
  2. TACROLIMUS [Concomitant]
  3. KEPPRA [Suspect]
     Indication: EPILEPSY
     Route: 048
     Dates: start: 20030101, end: 20120503
  4. BACTRIM [Concomitant]
  5. MYFORTIC [Concomitant]

REACTIONS (1)
  - METABOLIC ENCEPHALOPATHY [None]
